FAERS Safety Report 7085523-1 (Version None)
Quarter: 2010Q4

REPORT INFORMATION
  Report Type: 
  Country: None (occurrence: None)
  Receive Date: 20101027
  Receipt Date: 20101014
  Transmission Date: 20110411
  Serious: Yes (Death, Other)
  Sender: FDA-Public Use
  Company Number: APP201000859

PATIENT
  Age: 67 Year
  Sex: Female

DRUGS (15)
  1. HEPARIN SODIUM INJECTION [Suspect]
     Indication: PRODUCT USED FOR UNKNOWN INDICATION
     Dosage: 5000 UNITS SUBCUTANEOUSLY EVERY 12 HOURS
     Route: 058
     Dates: start: 20070501
  2. HEPARIN SODIUM [Suspect]
     Indication: PRODUCT USED FOR UNKNOWN INDICATION
     Dosage: 25000 UNITS IN 5000ML 0.45% NACL IV, INTRAVENOUS
     Route: 042
     Dates: start: 20070501
  3. HEPARIN SODIUM [Suspect]
     Indication: INTRAVENOUS CATHETER MANAGEMENT
     Dosage: 1000 UNITS, INTRAVENOUS
     Route: 042
     Dates: start: 20070501
  4. WARFARIN SODIUM [Concomitant]
  5. PANTOPRAZOLE SODIUM [Concomitant]
  6. FERROUS GLUCONATE (FERROUS GLUCONATE) [Concomitant]
  7. CALCIUM W/VITAMIN D [Concomitant]
  8. ROSUVASTATIN [Concomitant]
  9. ADVAIR DISKUS 100/50 [Concomitant]
  10. ALLOPURINOL [Concomitant]
  11. DIGOXIN [Concomitant]
  12. GEMFIBROZIL [Concomitant]
  13. POTASSIUM CHLORIDE [Concomitant]
  14. LEXAPRO [Concomitant]
  15. TORSEMIDE [Concomitant]

REACTIONS (12)
  - ACTIVATED PARTIAL THROMBOPLASTIN TIME PROLONGED [None]
  - ASCITES [None]
  - BALANCE DISORDER [None]
  - DECREASED APPETITE [None]
  - DYSPNOEA [None]
  - HAEMOPTYSIS [None]
  - HYPERSENSITIVITY [None]
  - LETHARGY [None]
  - MULTI-ORGAN FAILURE [None]
  - NAUSEA [None]
  - PULMONARY ALVEOLAR HAEMORRHAGE [None]
  - UNRESPONSIVE TO STIMULI [None]
